FAERS Safety Report 18853193 (Version 2)
Quarter: 2021Q1

REPORT INFORMATION
  Report Type: Spontaneous
  Country: US (occurrence: US)
  Receive Date: 20210205
  Receipt Date: 20210210
  Transmission Date: 20210420
  Serious: Yes (Hospitalization)
  Sender: FDA-Public Use
  Company Number: US-FRESENIUS MEDICAL CARE RENAL THERAPIES GROUP-FMC-2102-000152

PATIENT
  Age: 77 Year
  Sex: Male
  Weight: 82.5 kg

DRUGS (3)
  1. DELFLEX WITH DEXTROSE 4.25% LOW MAGNESIUM LOW CALCIUM [Suspect]
     Active Substance: CALCIUM CHLORIDE\DEXTROSE\MAGNESIUM CHLORIDE\SODIUM CHLORIDE\SODIUM LACTATE
     Indication: END STAGE RENAL DISEASE
     Dosage: 2400 ML FOR 4 CYCLES WITH A LAST FILL OF 1000 ML AND A DAYTIME EXCHANGE OF 2000 ML, SINCE APRIL 2017
     Route: 033
  2. DELFLEX WITH DEXTROSE 1.5% LOW MAGNESIUM LOW CALCIUM [Suspect]
     Active Substance: CALCIUM CHLORIDE\DEXTROSE\MAGNESIUM CHLORIDE\SODIUM CHLORIDE\SODIUM LACTATE
     Indication: END STAGE RENAL DISEASE
     Dosage: 2400 ML FOR 4 CYCLES WITH A LAST FILL OF 1000 ML AND A DAYTIME EXCHANGE OF 2000 ML, SINCE APRIL 2017
     Route: 033
  3. DELFLEX WITH DEXTROSE 2.5% LOW MAGNESIUM LOW CALCIUM [Suspect]
     Active Substance: CALCIUM CHLORIDE\DEXTROSE\MAGNESIUM CHLORIDE\SODIUM CHLORIDE\SODIUM LACTATE
     Indication: END STAGE RENAL DISEASE
     Dosage: 2400 ML FOR 4 CYCLES WITH A LAST FILL OF 1000 ML AND A DAYTIME EXCHANGE OF 2000 ML, SINCE APRIL 2017
     Route: 033

REACTIONS (1)
  - Pneumonia [Unknown]
